FAERS Safety Report 7318653-7 (Version None)
Quarter: 2011Q1

REPORT INFORMATION
  Report Type: 
  Country: None (occurrence: None)
  Receive Date: 20110228
  Receipt Date: 20110218
  Transmission Date: 20110831
  Serious: Yes (Hospitalization)
  Sender: FDA-Public Use
  Company Number: DE-BRISTOL-MYERS SQUIBB COMPANY-15570302

PATIENT
  Age: 72 Year
  Sex: Male

DRUGS (3)
  1. CETUXIMAB [Suspect]
     Indication: NON-SMALL CELL LUNG CANCER
     Dosage: STRENGTH:5MG/ML RECENT INF:16FEB11
     Route: 042
     Dates: start: 20101207
  2. CISPLATIN [Suspect]
     Indication: NON-SMALL CELL LUNG CANCER
     Dosage: RECENT INF:09FEB11
     Route: 042
     Dates: start: 20101207
  3. GEMCITABINE [Suspect]
     Indication: NON-SMALL CELL LUNG CANCER
     Dosage: D1 AND D8 OF EACH 3 WK CYCLE RECENT INF:16DEC10
     Route: 042
     Dates: start: 20101207

REACTIONS (1)
  - EMBOLISM ARTERIAL [None]
